FAERS Safety Report 4394161-0 (Version None)
Quarter: 2004Q3

REPORT INFORMATION
  Report Type: 
  Country: None (occurrence: None)
  Receive Date: 20040707
  Receipt Date: 20040625
  Transmission Date: 20050211
  Serious: Yes (Life-Threatening, Hospitalization)
  Sender: FDA-Public Use
  Company Number: 163-20785-03120471

PATIENT
  Age: 59 Year
  Sex: Male

DRUGS (10)
  1. THALOMID [Suspect]
     Indication: PROSTATE CANCER METASTATIC
     Dosage: 100 MG, QD, ORAL
     Route: 048
     Dates: start: 20031007, end: 20040521
  2. TAXOTERE (DOCETAXEL) (CAPSULES) [Suspect]
     Indication: PROSTATE CANCER METASTATIC
     Dosage: 25 MG/M2, WEEKLY X3, DAY 2
     Dates: start: 20031008, end: 20040310
  3. EMCYT [Suspect]
     Indication: PROSTATE CANCER METASTATIC
     Dosage: 140 MG TID, WEEKLY X3, DAY 1-3, ORAL
     Route: 048
     Dates: start: 20031007, end: 20040310
  4. TOPROL-XL [Concomitant]
  5. CAPTOPRIL [Concomitant]
  6. LUPRON [Concomitant]
  7. INSULIN [Concomitant]
  8. COUMADIN [Concomitant]
  9. ASPIRIN [Concomitant]
  10. NEURONTIN [Concomitant]

REACTIONS (12)
  - BLOOD CREATINE PHOSPHOKINASE INCREASED [None]
  - BLOOD PRESSURE SYSTOLIC INCREASED [None]
  - CARDIAC FAILURE CONGESTIVE [None]
  - DIARRHOEA [None]
  - HEART RATE INCREASED [None]
  - NEUROPATHY PERIPHERAL [None]
  - OEDEMA PERIPHERAL [None]
  - PNEUMONIA [None]
  - RESPIRATORY RATE INCREASED [None]
  - SCROTAL ABSCESS [None]
  - VOMITING [None]
  - WHITE BLOOD CELL COUNT INCREASED [None]
